FAERS Safety Report 6928350-5 (Version None)
Quarter: 2010Q3

REPORT INFORMATION
  Report Type: 
  Country: None (occurrence: None)
  Receive Date: 20100810
  Receipt Date: 20100803
  Transmission Date: 20110219
  Serious: Yes (Hospitalization, Disabling, Other)
  Sender: FDA-Public Use
  Company Number: 2005-136056-NL

PATIENT
  Age: 36 Year
  Sex: Female
  Weight: 72.6 kg

DRUGS (8)
  1. NUVARING [Suspect]
     Indication: ENDOMETRIOSIS
     Dosage: VAG
     Route: 067
     Dates: start: 20040901, end: 20051118
  2. NUVARING [Suspect]
  3. ADVAIR DISKUS 100/50 [Concomitant]
  4. ALBUTEROL [Concomitant]
  5. PROMETHAZINE [Concomitant]
  6. HYDROCODONE W/APA [Concomitant]
  7. ZYRTEC [Concomitant]
  8. LORTAB [Concomitant]

REACTIONS (25)
  - ACNE [None]
  - ADNEXA UTERI CYST [None]
  - ASTHMA [None]
  - CHEST DISCOMFORT [None]
  - CHEST PAIN [None]
  - DEEP VEIN THROMBOSIS [None]
  - DISEASE RECURRENCE [None]
  - EMOTIONAL DISORDER [None]
  - ENDOMETRIOSIS [None]
  - FIBROUS DYSPLASIA OF BONE [None]
  - HOT FLUSH [None]
  - HYPERCOAGULATION [None]
  - INTERNATIONAL NORMALISED RATIO INCREASED [None]
  - MENSTRUATION DELAYED [None]
  - MITRAL VALVE PROLAPSE [None]
  - PALPITATIONS [None]
  - PELVIC DISCOMFORT [None]
  - PELVIC PAIN [None]
  - PNEUMONIA [None]
  - PROTHROMBIN TIME PROLONGED [None]
  - PULMONARY EMBOLISM [None]
  - STRESS [None]
  - SUPRAVENTRICULAR TACHYCARDIA [None]
  - TACHYCARDIA [None]
  - UTERINE POLYP [None]
